FAERS Safety Report 18664821 (Version 2)
Quarter: 2021Q1

REPORT INFORMATION
  Report Type: Other
  Country: US (occurrence: US)
  Receive Date: 20201225
  Receipt Date: 20210113
  Transmission Date: 20210419
  Serious: Yes (Death)
  Sender: FDA-Public Use
  Company Number: US-ROCHE-2737568

PATIENT
  Sex: Female

DRUGS (18)
  1. KLONOPIN [Suspect]
     Active Substance: CLONAZEPAM
     Indication: PRODUCT USED FOR UNKNOWN INDICATION
     Dosage: TAKE ONE TABLET BY MOUTH THREE TIMES DAILY AS NEEDED
     Route: 048
  2. PREGABALIN. [Concomitant]
     Active Substance: PREGABALIN
     Route: 048
  3. MECLIZINE [Concomitant]
     Active Substance: MECLIZINE HYDROCHLORIDE
  4. MAGNESIUM OXIDE. [Concomitant]
     Active Substance: MAGNESIUM OXIDE
     Route: 048
  5. OCREVUS [Suspect]
     Active Substance: OCRELIZUMAB
     Indication: RELAPSING MULTIPLE SCLEROSIS
     Dosage: OCREVUS 300 MG IV THEN REPEAT 2 WKS?DATE OF TREATMENT: 23/JUL/2020, 06/AUG/2020
     Route: 042
  6. BACLOFEN. [Concomitant]
     Active Substance: BACLOFEN
     Dosage: TAKE 2 TABS BY MOTH 2 TIMES DAILY
     Route: 048
  7. CITALOPRAM [Concomitant]
     Active Substance: CITALOPRAM HYDROBROMIDE
     Route: 048
  8. DALFAMPRIDINE. [Concomitant]
     Active Substance: DALFAMPRIDINE
     Dosage: FOR 30 DAYS
     Route: 048
  9. NORCO [Concomitant]
     Active Substance: ACETAMINOPHEN\HYDROCODONE BITARTRATE
     Dosage: 5?325 MG
  10. MEDROL [Concomitant]
     Active Substance: METHYLPREDNISOLONE
     Dosage: DOSPACK
  11. GABAPENTIN. [Concomitant]
     Active Substance: GABAPENTIN
  12. FLUTICASONE. [Concomitant]
     Active Substance: FLUTICASONE
     Dosage: AS NEEDED?50 MCG
  13. OLANZAPINE. [Concomitant]
     Active Substance: OLANZAPINE
     Route: 048
  14. OMEPRAZOLE. [Concomitant]
     Active Substance: OMEPRAZOLE
     Route: 048
  15. SUVOREXANT. [Concomitant]
     Active Substance: SUVOREXANT
     Route: 048
  16. OCREVUS [Suspect]
     Active Substance: OCRELIZUMAB
     Dosage: OCREVUS 600 MG Q 6 MOS
     Route: 042
  17. MELOXICAM. [Concomitant]
     Active Substance: MELOXICAM
     Indication: PAIN
     Dosage: WHEN NEEDED
     Route: 048
  18. METOPROLOL SUCCINATE. [Concomitant]
     Active Substance: METOPROLOL SUCCINATE
     Dosage: FOR 30 DAYS?SR 24 HR
     Route: 048

REACTIONS (1)
  - Arteriosclerosis coronary artery [Fatal]
